FAERS Safety Report 9608922 (Version 3)
Quarter: 2013Q4

REPORT INFORMATION
  Report Type: Spontaneous
  Country: JP (occurrence: JP)
  Receive Date: 20131009
  Receipt Date: 20131205
  Transmission Date: 20140711
  Serious: Yes (Other)
  Sender: FDA-Public Use
  Company Number: JP-OTSUKA-JP-2013-13986

PATIENT
  Age: 74 Year
  Sex: Male
  Weight: 63.6 kg

DRUGS (19)
  1. SAMSCA [Suspect]
     Indication: POLYURIA
     Dosage: 7.5 MG MILLIGRAM(S), QD
     Route: 048
     Dates: start: 20130913, end: 20130917
  2. LASIX [Concomitant]
     Indication: POLYURIA
     Dosage: 100 MG MILLIGRAM(S), DAILY DOSE
     Route: 041
     Dates: start: 20130904, end: 20130916
  3. LASIX [Concomitant]
     Dosage: 150 MG MILLIGRAM(S), DAILY DOSE
     Route: 041
     Dates: start: 20130917, end: 20130917
  4. NEORAL [Concomitant]
     Indication: NEPHROTIC SYNDROME
     Dosage: 100 MG MILLIGRAM(S), QD
     Route: 048
     Dates: start: 20130904, end: 20130917
  5. NEORAL [Concomitant]
     Dosage: 50 MG MILLIGRAM(S), DAILY DOSE
     Route: 048
     Dates: start: 20130918, end: 20130924
  6. ALDOMET [Concomitant]
     Indication: HYPERTENSION
     Dosage: 375 MG MILLIGRAM(S), TID
     Route: 048
     Dates: start: 20130904, end: 20130905
  7. ALDOMET [Concomitant]
     Dosage: 750 MG MILLIGRAM(S), DAILY DOSE
     Route: 048
     Dates: start: 20130906
  8. PREDONINE [Concomitant]
     Indication: NEPHROTIC SYNDROME
     Dosage: 7.5 MG MILLIGRAM(S), QD
     Route: 048
     Dates: start: 20130904, end: 20130917
  9. PREDONINE [Concomitant]
     Dosage: 5 MG MILLIGRAM(S), DAILY DOSE
     Route: 048
     Dates: start: 20130918
  10. WARFARIN K [Concomitant]
     Indication: ANTICOAGULANT THERAPY
     Dosage: 2.5 MG MILLIGRAM(S), QD
     Route: 048
     Dates: start: 20130904
  11. ADALAT CR [Concomitant]
     Indication: HYPERTENSION
     Dosage: 40 MG MILLIGRAM(S), BID
     Route: 048
     Dates: start: 20130904
  12. MAINTATE [Concomitant]
     Dosage: 5 MG MILLIGRAM(S), QD
     Route: 048
     Dates: start: 20130904
  13. CARDENALIN [Concomitant]
     Dosage: 8 MG MILLIGRAM(S), QD
     Route: 048
     Dates: start: 20130904
  14. RENIVACE [Concomitant]
     Dosage: 5 MG MILLIGRAM(S), QD
     Route: 048
     Dates: start: 20130904
  15. OLMETEC [Concomitant]
     Dosage: 20 MG MILLIGRAM(S), BID
     Route: 048
     Dates: start: 20130904
  16. LIPITOR [Concomitant]
     Dosage: 10 MG MILLIGRAM(S), QD
     Route: 048
     Dates: start: 20130904
  17. FEBURIC [Concomitant]
     Dosage: 40 MG MILLIGRAM(S), QD
     Route: 048
     Dates: start: 20130904
  18. PARIET [Concomitant]
     Dosage: 10 MG MILLIGRAM(S), QD
     Route: 048
     Dates: start: 20130904
  19. HANP [Concomitant]
     Indication: POLYURIA
     Dosage: 0.025 UG/KG/MIN, DAILY DOSE
     Route: 042

REACTIONS (3)
  - Cholecystitis [Recovered/Resolved]
  - Hepatic function abnormal [Recovered/Resolved]
  - Pyrexia [Recovered/Resolved]
